FAERS Safety Report 19069389 (Version 5)
Quarter: 2023Q2

REPORT INFORMATION
  Report Type: Spontaneous
  Country: US (occurrence: US)
  Receive Date: 20210329
  Receipt Date: 20230408
  Transmission Date: 20230721
  Serious: Yes (Other)
  Sender: FDA-Public Use
  Company Number: US-GILEAD-2021-0523107

PATIENT
  Age: 50 Year
  Sex: Male
  Weight: 79.378 kg

DRUGS (35)
  1. ATRIPLA [Suspect]
     Active Substance: EFAVIRENZ\EMTRICITABINE\TENOFOVIR DISOPROXIL FUMARATE
     Indication: HIV infection
     Dosage: UNK
     Route: 048
     Dates: start: 200603, end: 201608
  2. BIKTARVY [Concomitant]
     Active Substance: BICTEGRAVIR SODIUM\EMTRICITABINE\TENOFOVIR ALAFENAMIDE FUMARATE
  3. TRIUMEQ [Concomitant]
     Active Substance: ABACAVIR SULFATE\DOLUTEGRAVIR SODIUM\LAMIVUDINE
  4. ALBUTEROL SULFATE [Concomitant]
     Active Substance: ALBUTEROL SULFATE
  5. ALPRAZOLAM [Concomitant]
     Active Substance: ALPRAZOLAM
  6. AMITRIPTYLINE [Concomitant]
     Active Substance: AMITRIPTYLINE
  7. ANORO ELLIPTA [Concomitant]
     Active Substance: UMECLIDINIUM BROMIDE\VILANTEROL TRIFENATATE
  8. CHANTIX [Concomitant]
     Active Substance: VARENICLINE TARTRATE
  9. CYCLOBENZAPRINE [Concomitant]
     Active Substance: CYCLOBENZAPRINE
  10. DEXAMETHASONE [Concomitant]
     Active Substance: DEXAMETHASONE
  11. DICLOFENAC [Concomitant]
     Active Substance: DICLOFENAC
  12. DOVATO [Concomitant]
     Active Substance: DOLUTEGRAVIR SODIUM\LAMIVUDINE
  13. DOXYCYCLINE [Concomitant]
     Active Substance: DOXYCYCLINE
  14. DRONABINOL [Concomitant]
     Active Substance: DRONABINOL
  15. EPINEPHRINE [Concomitant]
     Active Substance: EPINEPHRINE
  16. FLUOROURACIL [Concomitant]
     Active Substance: FLUOROURACIL
  17. FUROSEMIDE [Concomitant]
     Active Substance: FUROSEMIDE
  18. GABAPENTIN [Concomitant]
     Active Substance: GABAPENTIN
  19. LYRICA [Concomitant]
     Active Substance: PREGABALIN
  20. MORPHINE [Concomitant]
     Active Substance: MORPHINE
  21. NARCAN [Concomitant]
     Active Substance: NALOXONE HYDROCHLORIDE
  22. DEXAMETHASONE\NEOMYCIN SULFATE\POLYMYXIN B SULFATE [Concomitant]
     Active Substance: DEXAMETHASONE\NEOMYCIN SULFATE\POLYMYXIN B SULFATE
  23. NICOTINE [Concomitant]
     Active Substance: NICOTINE
  24. NITROGLYCERIN [Concomitant]
     Active Substance: NITROGLYCERIN
  25. OXYCODONE [Concomitant]
     Active Substance: OXYCODONE
  26. OXYCONTIN [Concomitant]
     Active Substance: OXYCODONE HYDROCHLORIDE
  27. PANTOPRAZOLE [Concomitant]
     Active Substance: PANTOPRAZOLE
  28. ACETAMINOPHEN\OXYCODONE HYDROCHLORIDE\OXYCODONE TEREPHTHALATE [Concomitant]
     Active Substance: ACETAMINOPHEN\OXYCODONE HYDROCHLORIDE\OXYCODONE TEREPHTHALATE
  29. PROAIR BRONQUIAL [Concomitant]
  30. PROVENTIL HFA [Concomitant]
     Active Substance: ALBUTEROL SULFATE
  31. CHLORMEZANONE [Concomitant]
     Active Substance: CHLORMEZANONE
  32. TAMSULOSIN [Concomitant]
     Active Substance: TAMSULOSIN
  33. TEMAZEPAM [Concomitant]
     Active Substance: TEMAZEPAM
  34. TOBRADEX [Concomitant]
     Active Substance: DEXAMETHASONE\TOBRAMYCIN
  35. XANAX [Concomitant]
     Active Substance: ALPRAZOLAM

REACTIONS (11)
  - Radius fracture [Not Recovered/Not Resolved]
  - Chronic kidney disease [Not Recovered/Not Resolved]
  - Wrist fracture [Recovered/Resolved]
  - Osteoporosis [Not Recovered/Not Resolved]
  - Therapeutic product effect decreased [Unknown]
  - Emotional distress [Not Recovered/Not Resolved]
  - Anhedonia [Not Recovered/Not Resolved]
  - Bone density decreased [Not Recovered/Not Resolved]
  - Pain [Not Recovered/Not Resolved]
  - Anxiety [Not Recovered/Not Resolved]
  - Fall [Unknown]

NARRATIVE: CASE EVENT DATE: 20140301
